FAERS Safety Report 10061184 (Version 1)
Quarter: 2014Q2

REPORT INFORMATION
  Report Type: Report from Study
  Country: JP (occurrence: JP)
  Receive Date: 20140407
  Receipt Date: 20140407
  Transmission Date: 20141212
  Serious: Yes (Other)
  Sender: FDA-Public Use
  Company Number: JP-ROCHE-1377543

PATIENT
  Sex: 0

DRUGS (3)
  1. PEG-INTERFERON ALFA 2A [Suspect]
     Indication: HEPATITIS C
     Route: 058
  2. RIBAVIRIN [Suspect]
     Indication: HEPATITIS C
     Dosage: 600-1000 MG TOTAL DAILY DOSE, DEPENDING ON BODY WEIGHT
     Route: 048
  3. SIMEPREVIR [Suspect]
     Indication: HEPATITIS C
     Route: 048

REACTIONS (4)
  - Laceration [Unknown]
  - Neutrophil count decreased [Unknown]
  - Rash [Unknown]
  - Anaemia [Unknown]
